FAERS Safety Report 7818850-8 (Version None)
Quarter: 2011Q4

REPORT INFORMATION
  Report Type: 
  Country: None (occurrence: None)
  Receive Date: 20111018
  Receipt Date: 20110911
  Transmission Date: 20120403
  Serious: Yes (Death)
  Sender: FDA-Public Use
  Company Number: IR-BRISTOL-MYERS SQUIBB COMPANY-16162786

PATIENT
  Age: 21 Year
  Sex: Female

DRUGS (1)
  1. METFORMIN HCL [Suspect]
     Indication: TYPE 2 DIABETES MELLITUS
     Route: 048

REACTIONS (4)
  - CARDIOVASCULAR DISORDER [None]
  - INTENTIONAL DRUG MISUSE [None]
  - HYPOGLYCAEMIA [None]
  - METABOLIC ACIDOSIS [None]
